FAERS Safety Report 16067177 (Version 1)
Quarter: 2019Q1

REPORT INFORMATION
  Report Type: Spontaneous
  Country: US (occurrence: US)
  Receive Date: 20190313
  Receipt Date: 20190313
  Transmission Date: 20190418
  Serious: Yes (Other)
  Sender: FDA-Public Use
  Company Number: US-SA-2019SA066476

PATIENT
  Age: 78 Year
  Sex: Male

DRUGS (1)
  1. TOUJEO [Suspect]
     Active Substance: INSULIN GLARGINE
     Indication: TYPE 2 DIABETES MELLITUS
     Dosage: 10 U, EVERY AM
     Route: 065

REACTIONS (3)
  - Parkinson^s disease [Unknown]
  - Device operational issue [Unknown]
  - Product dose omission [Unknown]
